FAERS Safety Report 7372391 (Version 3)
Quarter: 2014Q1

REPORT INFORMATION
  Report Type: Report from Study
  Country: HU (occurrence: HU)
  Receive Date: 20100430
  Receipt Date: 20140303
  Transmission Date: 20141002
  Serious: Yes (Death, Hospitalization)
  Sender: FDA-Public Use
  Company Number: HU-ROCHE-699456

PATIENT
  Age: 49 Year
  Sex: Male
  Weight: 78 kg

DRUGS (3)
  1. PEG-INTERFERON ALFA 2A [Suspect]
     Indication: CHRONIC HEPATITIS C
     Dosage: DATE OF LAST DOSE PRIOR TO SADR: 19 MAR 2010
     Route: 058
     Dates: start: 20090911, end: 20100322
  2. RIBAVIRIN [Suspect]
     Indication: CHRONIC HEPATITIS C
     Dosage: DATE OF LAST DOSE PRIOR TO SADR: 19 MAR 2010
     Route: 048
     Dates: start: 20090911, end: 20100322
  3. RUBOPHEN [Concomitant]
     Route: 065
     Dates: start: 20100319, end: 20100321

REACTIONS (1)
  - Thrombotic thrombocytopenic purpura [Fatal]
